FAERS Safety Report 19765129 (Version 7)
Quarter: 2022Q1

REPORT INFORMATION
  Report Type: Report from Study
  Country: US (occurrence: US)
  Receive Date: 20210831
  Receipt Date: 20220107
  Transmission Date: 20220424
  Serious: Yes (Other)
  Sender: FDA-Public Use
  Company Number: NVSC2021US196486

PATIENT
  Sex: Female

DRUGS (2)
  1. ENTRESTO [Suspect]
     Active Substance: SACUBITRIL\VALSARTAN
     Indication: Product used for unknown indication
     Dosage: UNK, BID
     Route: 048
  2. ENTRESTO [Suspect]
     Active Substance: SACUBITRIL\VALSARTAN
     Dosage: UNK
     Route: 048

REACTIONS (16)
  - Diabetes mellitus [Unknown]
  - Chest pain [Unknown]
  - Blood cholesterol increased [Unknown]
  - Sluggishness [Unknown]
  - Depressed mood [Unknown]
  - Throat clearing [Unknown]
  - Decreased activity [Unknown]
  - Memory impairment [Unknown]
  - Dyspnoea [Unknown]
  - Fatigue [Unknown]
  - Asthenia [Unknown]
  - Wrong technique in product usage process [Unknown]
  - Bradykinesia [Unknown]
  - Nasopharyngitis [Unknown]
  - Cough [Unknown]
  - Vein discolouration [Unknown]
